FAERS Safety Report 6290458 (Version 3)
Quarter: 2021Q4

REPORT INFORMATION
  Report Type: Spontaneous
  Country: NL (occurrence: NL)
  Receive Date: 20070417
  Receipt Date: 20211001
  Transmission Date: 20220304
  Serious: Yes (Other)
  Sender: FDA-Public Use
  Company Number: NL-PFIZER INC-2007027608

PATIENT
  Age: 35 Year
  Sex: Female

DRUGS (7)
  1. PHENYTOIN [Suspect]
     Active Substance: PHENYTOIN
     Indication: Status epilepticus
  2. VALPROATE [Concomitant]
     Active Substance: VALPROIC ACID
     Indication: Epilepsy
  3. CEFTAZIDIME [Concomitant]
     Active Substance: CEFTAZIDIME
     Indication: Urosepsis
  4. FUROSEMIDE [Concomitant]
     Active Substance: FUROSEMIDE
  5. FLUCONAZOLE [Concomitant]
     Active Substance: FLUCONAZOLE
  6. PANTOPRAZOLE [Concomitant]
     Active Substance: PANTOPRAZOLE
  7. NADROPARIN [Concomitant]
     Active Substance: NADROPARIN

REACTIONS (9)
  - Respiratory disorder [Unknown]
  - Anticonvulsant drug level increased [Unknown]
  - Myoclonus [Recovered/Resolved]
  - Hallucination [Recovered/Resolved]
  - Hypoalbuminaemia [Unknown]
  - Nervous system disorder [Unknown]
  - Disorientation [Recovered/Resolved]
  - Somnolence [Recovered/Resolved]
  - Toxicity to various agents [Recovered/Resolved]
